FAERS Safety Report 8761888 (Version 1)
Quarter: 2012Q4

REPORT INFORMATION
  Report Type: 
  Country: US (occurrence: US)
  Receive Date: 20120830
  Receipt Date: 20120830
  Transmission Date: 20130627
  Serious: Yes (Other)
  Sender: FDA-Public Use
  Company Number: US-PFIZER INC-2012210348

PATIENT
  Age: 78 Year
  Sex: Female
  Weight: 73.47 kg

DRUGS (1)
  1. PREMPRO [Suspect]
     Indication: HORMONE THERAPY
     Dosage: 0.3 mg, 1x/day
     Route: 048

REACTIONS (3)
  - Ovarian cyst [Unknown]
  - Genital haemorrhage [Not Recovered/Not Resolved]
  - Muscle spasms [Not Recovered/Not Resolved]
